FAERS Safety Report 5829901-4 (Version None)
Quarter: 2008Q3

REPORT INFORMATION
  Report Type: 
  Country: None (occurrence: None)
  Receive Date: 20080801
  Receipt Date: 20080729
  Transmission Date: 20090109
  Serious: Yes (Other)
  Sender: FDA-Public Use
  Company Number: IT-AVENTIS-200813807EU

PATIENT
  Age: 79 Year
  Sex: Female

DRUGS (7)
  1. ENOXAPARIN SODIUM [Suspect]
     Route: 058
     Dates: start: 20080711, end: 20080711
  2. TRIATEC                            /00885601/ [Concomitant]
     Route: 048
  3. MIRAPEXIN [Concomitant]
     Route: 048
  4. GARDENALE [Concomitant]
     Route: 048
  5. MADOPAR                            /00349201/ [Concomitant]
     Route: 048
  6. FUROSEMIDE [Concomitant]
     Route: 048
  7. ESOPRAL                            /01479301/ [Concomitant]
     Route: 048

REACTIONS (1)
  - ANGIOEDEMA [None]
